FAERS Safety Report 14633319 (Version 1)
Quarter: 2018Q1

REPORT INFORMATION
  Report Type: Spontaneous
  Country: AU (occurrence: AU)
  Receive Date: 20180313
  Receipt Date: 20180313
  Transmission Date: 20180509
  Serious: Yes (Other)
  Sender: FDA-Public Use
  Company Number: AU-009507513-1803AUS002839

PATIENT
  Sex: Female

DRUGS (6)
  1. LEVOTHYROXINE SODIUM. [Concomitant]
     Active Substance: LEVOTHYROXINE SODIUM
  2. LETROZOLE. [Concomitant]
     Active Substance: LETROZOLE
  3. SIMVASTATIN. [Suspect]
     Active Substance: SIMVASTATIN
     Indication: BREAST CANCER METASTATIC
  4. ATACAND [Concomitant]
     Active Substance: CANDESARTAN CILEXETIL
  5. RIBOCICLIB. [Concomitant]
     Active Substance: RIBOCICLIB
  6. SIMVASTATIN. [Suspect]
     Active Substance: SIMVASTATIN
     Indication: DYSLIPIDAEMIA

REACTIONS (2)
  - Metastases to bone [Unknown]
  - Laboratory test abnormal [Unknown]
